FAERS Safety Report 12709038 (Version 1)
Quarter: 2016Q3

REPORT INFORMATION
  Report Type: Spontaneous
  Country: US (occurrence: US)
  Receive Date: 20160901
  Receipt Date: 20160901
  Transmission Date: 20161109
  Serious: No
  Sender: FDA-Public Use
  Company Number: US-JAZZ-2016-US-008336

PATIENT
  Sex: Female
  Weight: 84.35 kg

DRUGS (16)
  1. DIAZEPAM. [Concomitant]
     Active Substance: DIAZEPAM
     Indication: DEPRESSION
  2. NORCO [Concomitant]
     Active Substance: ACETAMINOPHEN\HYDROCODONE BITARTRATE
  3. ATORVASTATIN [Concomitant]
     Active Substance: ATORVASTATIN
  4. XYREM [Suspect]
     Active Substance: SODIUM OXYBATE
     Dosage: DOSE ADJUSTMENTS
     Route: 048
     Dates: start: 2016, end: 2016
  5. XYREM [Suspect]
     Active Substance: SODIUM OXYBATE
     Dosage: 3.75 G, BID
     Route: 048
     Dates: start: 2016
  6. VALTREX [Concomitant]
     Active Substance: VALACYCLOVIR HYDROCHLORIDE
  7. ANUSOL HC [Concomitant]
     Active Substance: HYDROCORTISONE
  8. IRON [Concomitant]
     Active Substance: IRON
  9. VICODIN [Concomitant]
     Active Substance: ACETAMINOPHEN\HYDROCODONE BITARTRATE
     Indication: BACK PAIN
  10. VITAMIN D [Concomitant]
     Active Substance: CHOLECALCIFEROL
  11. DOXEPIN [Concomitant]
     Active Substance: DOXEPIN
  12. XYREM [Suspect]
     Active Substance: SODIUM OXYBATE
     Indication: NARCOLEPSY
     Dosage: 2.25 G, BID
     Route: 048
     Dates: start: 201603, end: 2016
  13. SOMA [Concomitant]
     Active Substance: CARISOPRODOL
     Indication: MUSCLE SPASMS
  14. VALIUM [Concomitant]
     Active Substance: DIAZEPAM
  15. GABAPENTIN. [Concomitant]
     Active Substance: GABAPENTIN
  16. OXCARBAZEPINE. [Concomitant]
     Active Substance: OXCARBAZEPINE

REACTIONS (4)
  - Condition aggravated [Not Recovered/Not Resolved]
  - Hyperhidrosis [Not Recovered/Not Resolved]
  - Muscle spasms [Not Recovered/Not Resolved]
  - Arthralgia [Not Recovered/Not Resolved]
